FAERS Safety Report 11404278 (Version 2)
Quarter: 2015Q3

REPORT INFORMATION
  Report Type: Spontaneous
  Country: US (occurrence: None)
  Receive Date: 20150812
  Receipt Date: 20150908
  Transmission Date: 20151125
  Serious: Yes (Other)
  Sender: FDA-Public Use
  Company Number: 1713747-2015-999251

PATIENT
  Age: 77 Year
  Sex: Male
  Weight: 82 kg

DRUGS (5)
  1. LANTUS [Concomitant]
     Active Substance: INSULIN GLARGINE
  2. FUROSEMIDE. [Concomitant]
     Active Substance: FUROSEMIDE
  3. DELFLEX [Suspect]
     Active Substance: CALCIUM CHLORIDE\DEXTROSE MONOHYDRATE\MAGNESIUM CHLORIDE\SODIUM CHLORIDE\SODIUM LACTATE
     Indication: PERITONEAL DIALYSIS
     Route: 033
  4. TRADJENTA [Concomitant]
     Active Substance: LINAGLIPTIN
  5. LIBERTY CYCLER [Concomitant]
     Active Substance: DEVICE

REACTIONS (1)
  - Peritonitis [None]

NARRATIVE: CASE EVENT DATE: 20150730
